FAERS Safety Report 6312889-X (Version None)
Quarter: 2009Q3

REPORT INFORMATION
  Report Type: 
  Country: None (occurrence: None)
  Receive Date: 20090818
  Receipt Date: 20090807
  Transmission Date: 20100115
  Serious: Yes (Other)
  Sender: FDA-Public Use
  Company Number: ES-TYCO HEALTHCARE/MALLINCKRODT-T200901487

PATIENT

DRUGS (3)
  1. OCTREOSCAN [Suspect]
     Indication: SCINTIGRAPHY
     Dosage: 3 ML, SINGLE
     Route: 042
     Dates: start: 20090610, end: 20090610
  2. ACTOCORTIN                         /00252902/ [Concomitant]
     Dosage: 200 MG, UNK
     Dates: start: 20090610, end: 20090610
  3. DIAZEPAM [Concomitant]
     Dosage: 10 MG, UNK
     Dates: start: 20090610, end: 20090610

REACTIONS (4)
  - ABDOMINAL PAIN UPPER [None]
  - HYPOPERFUSION [None]
  - PARAESTHESIA [None]
  - TACHYCARDIA [None]
